FAERS Safety Report 13024011 (Version 47)
Quarter: 2025Q3

REPORT INFORMATION
  Report Type: Spontaneous
  Country: US (occurrence: US)
  Receive Date: 20161213
  Receipt Date: 20250925
  Transmission Date: 20251020
  Serious: Yes (Hospitalization, Other)
  Sender: PFIZER
  Company Number: US-PFIZER INC-2016569208

PATIENT
  Age: 40 Year
  Sex: Female

DRUGS (66)
  1. ELELYSO [Suspect]
     Active Substance: TALIGLUCERASE ALFA
     Indication: Gaucher^s disease type I
     Dates: start: 2012
  2. ELELYSO [Suspect]
     Active Substance: TALIGLUCERASE ALFA
     Dates: start: 201307
  3. ELELYSO [Suspect]
     Active Substance: TALIGLUCERASE ALFA
  4. ELELYSO [Suspect]
     Active Substance: TALIGLUCERASE ALFA
     Route: 042
  5. ELELYSO [Suspect]
     Active Substance: TALIGLUCERASE ALFA
  6. ELELYSO [Suspect]
     Active Substance: TALIGLUCERASE ALFA
     Dates: start: 20240914
  7. ELELYSO [Suspect]
     Active Substance: TALIGLUCERASE ALFA
  8. ELELYSO [Suspect]
     Active Substance: TALIGLUCERASE ALFA
     Dates: start: 20250704
  9. ELELYSO [Suspect]
     Active Substance: TALIGLUCERASE ALFA
  10. ABILIFY [Concomitant]
     Active Substance: ARIPIPRAZOLE
     Dosage: 2 MG, DAILY
  11. ABILIFY [Concomitant]
     Active Substance: ARIPIPRAZOLE
  12. ADVAIR HFA [Concomitant]
     Active Substance: FLUTICASONE PROPIONATE\SALMETEROL XINAFOATE
     Indication: Rhinitis allergic
  13. ADVIL [Concomitant]
     Active Substance: IBUPROFEN
  14. ALLEGRA [Concomitant]
     Active Substance: FEXOFENADINE HYDROCHLORIDE
     Indication: Rhinitis allergic
     Route: 048
  15. AMLODIPINE [Concomitant]
     Active Substance: AMLODIPINE BESYLATE
  16. ATIVAN [Concomitant]
     Active Substance: LORAZEPAM
     Indication: Sleep disorder
  17. ATORVASTATIN [Concomitant]
     Active Substance: ATORVASTATIN
     Dosage: 10 MG, DAILY
     Route: 048
  18. BENADRYL [Concomitant]
     Active Substance: DIPHENHYDRAMINE HYDROCHLORIDE
     Indication: Premedication
     Route: 042
  19. BENADRYL [Concomitant]
     Active Substance: DIPHENHYDRAMINE HYDROCHLORIDE
     Route: 042
  20. BENADRYL [Concomitant]
     Active Substance: DIPHENHYDRAMINE HYDROCHLORIDE
     Route: 048
  21. BENADRYL [Concomitant]
     Active Substance: DIPHENHYDRAMINE HYDROCHLORIDE
  22. BENADRYL [Concomitant]
     Active Substance: DIPHENHYDRAMINE HYDROCHLORIDE
  23. CHOLECALCIFEROL [Concomitant]
     Active Substance: CHOLECALCIFEROL
     Indication: Vitamin D deficiency
     Dosage: 5000 IU, DAILY
     Route: 048
  24. CHOLECALCIFEROL [Concomitant]
     Active Substance: CHOLECALCIFEROL
     Indication: Gaucher^s disease
     Dosage: 1000 IU, DAILY
  25. CYMBALTA [Concomitant]
     Active Substance: DULOXETINE HYDROCHLORIDE
     Dosage: 30 MG, DAILY
  26. CYMBALTA [Concomitant]
     Active Substance: DULOXETINE HYDROCHLORIDE
     Dosage: 60 MG, DAILY
  27. DYAZIDE [Concomitant]
     Active Substance: HYDROCHLOROTHIAZIDE\TRIAMTERENE
     Indication: Hypertension
     Dosage: 1 DF, 1X/DAY (EVERY MORNING) (TRIAMTERENE 37.5 MG / HYDROCHLOROTHIAZIDE 25 MG)
  28. DYAZIDE [Concomitant]
     Active Substance: HYDROCHLOROTHIAZIDE\TRIAMTERENE
     Dosage: UNK UNK, (3 7.5/25 MG  DAILY
  29. TYLENOL [Concomitant]
     Active Substance: ACETAMINOPHEN
     Indication: Premedication
  30. ESGIC [Concomitant]
     Active Substance: ACETAMINOPHEN\BUTALBITAL\CAFFEINE
     Indication: Headache
  31. ESGIC [Concomitant]
     Active Substance: ACETAMINOPHEN\BUTALBITAL\CAFFEINE
     Indication: Migraine
  32. FERROUS SULFATE [Concomitant]
     Active Substance: FERROUS SULFATE
     Dosage: 325 MG, 1X/DAY (DAILY WITH BREAKFAST)
  33. FOLIC ACID [Concomitant]
     Active Substance: FOLIC ACID
     Indication: Pain
     Dosage: 1 MG, DAILY
  34. IBUPROFEN [Concomitant]
     Active Substance: IBUPROFEN
     Indication: Premedication
  35. INDERAL [Concomitant]
     Active Substance: PROPRANOLOL HYDROCHLORIDE
  36. KLONOPIN [Concomitant]
     Active Substance: CLONAZEPAM
     Dosage: 0.5 MG, DAILY
  37. KLONOPIN [Concomitant]
     Active Substance: CLONAZEPAM
     Dosage: 1.5 MG, DAILY (0.5 MG IN THE MORNING AND 1 MG AT NIGHT)
  38. KLONOPIN [Concomitant]
     Active Substance: CLONAZEPAM
     Dosage: 0.5 MG, 3X/DAY
  39. KLOR-CON [Concomitant]
     Active Substance: POTASSIUM CHLORIDE
     Indication: Hypokalaemia
     Dosage: 10 MEQ, DAILY
  40. KLOR-CON [Concomitant]
     Active Substance: POTASSIUM CHLORIDE
  41. LIPITOR [Concomitant]
     Active Substance: ATORVASTATIN CALCIUM
     Dosage: 10 MG, DAILY
  42. LORAZEPAM [Concomitant]
     Active Substance: LORAZEPAM
     Dosage: 1 MG, 3X/DAY
  43. LOSARTAN [Concomitant]
     Active Substance: LOSARTAN
     Indication: Hypertension
     Dosage: 50 MG, DAILY
  44. LOSARTAN [Concomitant]
     Active Substance: LOSARTAN
     Dosage: 100 MG, DAILY
  45. LUNESTA [Concomitant]
     Active Substance: ESZOPICLONE
     Indication: Sleep disorder
     Dosage: 2 MG, 1X/DAY (AT NIGHT)
  46. METFORMIN [Concomitant]
     Active Substance: METFORMIN HYDROCHLORIDE
     Dosage: 2000 MG, 1X/DAY (NIGHTLY)
  47. METFORMIN [Concomitant]
     Active Substance: METFORMIN HYDROCHLORIDE
     Dosage: 1000 MG, DAILY
  48. METFORMIN [Concomitant]
     Active Substance: METFORMIN HYDROCHLORIDE
     Dosage: 500 MG, ALTERNATE DAY
  49. NORCO [Concomitant]
     Active Substance: ACETAMINOPHEN\HYDROCODONE BITARTRATE
     Indication: Pain
  50. NORVASC [Concomitant]
     Active Substance: AMLODIPINE BESYLATE
     Indication: Hypertension
     Dosage: 10 MG, DAILY
     Route: 048
  51. NORVASC [Concomitant]
     Active Substance: AMLODIPINE BESYLATE
  52. NORVASC [Concomitant]
     Active Substance: AMLODIPINE BESYLATE
     Dosage: 5 MG, DAILY
  53. OMEPRAZOLE [Concomitant]
     Active Substance: OMEPRAZOLE
     Route: 048
  54. OMEPRAZOLE [Concomitant]
     Active Substance: OMEPRAZOLE
     Dosage: 40 MG, DAILY
  55. PRILOSEC [Concomitant]
     Active Substance: OMEPRAZOLE MAGNESIUM
     Dosage: 40 MG, DAILY
  56. PRISTIQ EXTENDED-RELEASE [Concomitant]
     Active Substance: DESVENLAFAXINE SUCCINATE
     Dosage: 50 MG, DAILY
     Route: 048
  57. PRISTIQ EXTENDED-RELEASE [Concomitant]
     Active Substance: DESVENLAFAXINE SUCCINATE
     Dosage: 100 MG, DAILY
  58. PROPRANOLOL [Concomitant]
     Active Substance: PROPRANOLOL HYDROCHLORIDE
     Dosage: 10 MG, DAILY
  59. PROPRANOLOL [Concomitant]
     Active Substance: PROPRANOLOL HYDROCHLORIDE
  60. VITAMIN B12 [Concomitant]
     Active Substance: CYANOCOBALAMIN
     Dosage: 100 UG, DAILY
     Route: 048
  61. VITAMIN B12 [Concomitant]
     Active Substance: CYANOCOBALAMIN
     Dosage: 1000 UG, DAILY
     Route: 048
  62. VITAMIN D [Concomitant]
     Active Substance: VITAMIN D NOS
     Dosage: 5000 IU, DAILY
  63. ZOLPIDEM [Concomitant]
     Active Substance: ZOLPIDEM TARTRATE
     Indication: Sleep apnoea syndrome
  64. ZYRTEC [Concomitant]
     Active Substance: CETIRIZINE HYDROCHLORIDE
  65. CELEBREX [Concomitant]
     Active Substance: CELECOXIB
     Indication: Muscle relaxant therapy
  66. BACLOFEN [Concomitant]
     Active Substance: BACLOFEN
     Indication: Muscle relaxant therapy

REACTIONS (85)
  - Pyelonephritis [Unknown]
  - Migraine [Recovering/Resolving]
  - Rectal haemorrhage [Unknown]
  - Anal abscess [Unknown]
  - Systemic lupus erythematosus [Unknown]
  - Hypothermia [Unknown]
  - Cellulitis staphylococcal [Unknown]
  - Papilloma viral infection [Unknown]
  - Spleen atrophy [Unknown]
  - Breast abscess [Unknown]
  - Kidney infection [Unknown]
  - Loss of consciousness [Not Recovered/Not Resolved]
  - Haemoglobin decreased [Unknown]
  - Back pain [Not Recovered/Not Resolved]
  - Depression [Not Recovered/Not Resolved]
  - Discomfort [Unknown]
  - Drug hypersensitivity [Not Recovered/Not Resolved]
  - Pyrexia [Recovered/Resolved]
  - Infusion related reaction [Unknown]
  - Proctalgia [Unknown]
  - Coccydynia [Unknown]
  - Bone pain [Unknown]
  - Arthralgia [Not Recovered/Not Resolved]
  - Anal fissure [Unknown]
  - Rectal prolapse [Unknown]
  - Increased tendency to bruise [Unknown]
  - Oedema [Not Recovered/Not Resolved]
  - Dyspnoea exertional [Unknown]
  - Cushingoid [Unknown]
  - Swelling face [Unknown]
  - Ecchymosis [Unknown]
  - Skin striae [Unknown]
  - Hyporeflexia [Unknown]
  - Gastrointestinal disorder [Unknown]
  - Polyuria [Unknown]
  - Weight fluctuation [Unknown]
  - Tachycardia [Unknown]
  - Osteoarthritis [Unknown]
  - Gastrointestinal motility disorder [Unknown]
  - Constipation [Unknown]
  - Cough [Unknown]
  - Dysphonia [Not Recovered/Not Resolved]
  - Upper respiratory tract congestion [Unknown]
  - Peripheral swelling [Not Recovered/Not Resolved]
  - Fatigue [Unknown]
  - Skin mass [Unknown]
  - Thyroid mass [Unknown]
  - Decreased appetite [Unknown]
  - Amenorrhoea [Unknown]
  - Swollen tongue [Not Recovered/Not Resolved]
  - Hyperhidrosis [Recovering/Resolving]
  - Myalgia [Unknown]
  - Bone disorder [Unknown]
  - Flushing [Unknown]
  - Conjunctivitis [Unknown]
  - Urticaria [Unknown]
  - Haematocrit decreased [Unknown]
  - Malaise [Unknown]
  - Splenomegaly [Unknown]
  - Somnolence [Unknown]
  - Pruritus [Unknown]
  - Disturbance in attention [Unknown]
  - Blood iron decreased [Unknown]
  - Fatigue [Unknown]
  - Somnolence [Unknown]
  - Pain [Not Recovered/Not Resolved]
  - Eye swelling [Not Recovered/Not Resolved]
  - Respiration abnormal [Unknown]
  - Influenza [Not Recovered/Not Resolved]
  - Muscle spasms [Not Recovered/Not Resolved]
  - Malaise [Not Recovered/Not Resolved]
  - Joint range of motion decreased [Unknown]
  - Mobility decreased [Not Recovered/Not Resolved]
  - Pain in extremity [Unknown]
  - Joint swelling [Not Recovered/Not Resolved]
  - Arthralgia [Not Recovered/Not Resolved]
  - Aphonia [Unknown]
  - Swelling [Not Recovered/Not Resolved]
  - Laryngitis [Not Recovered/Not Resolved]
  - Dermatitis allergic [Not Recovered/Not Resolved]
  - Pyrexia [Unknown]
  - Product dispensing error [Unknown]
  - Intentional product misuse [Unknown]
  - Inappropriate schedule of product administration [Unknown]
  - Product dose omission issue [Unknown]

NARRATIVE: CASE EVENT DATE: 20161101
